FAERS Safety Report 9676419 (Version 1)
Quarter: 2013Q4

REPORT INFORMATION
  Report Type: Spontaneous
  Country: JP (occurrence: JP)
  Receive Date: 20131107
  Receipt Date: 20131107
  Transmission Date: 20140711
  Serious: Yes (Hospitalization, Other)
  Sender: FDA-Public Use
  Company Number: JP-B.I. PHARMACEUTICALS,INC./RIDGEFIELD-2013-BI-35246NB

PATIENT
  Age: 71 Year
  Sex: Male
  Weight: 65 kg

DRUGS (6)
  1. PRAZAXA [Suspect]
     Indication: ATRIAL FIBRILLATION
     Dosage: 220 MG
     Route: 048
     Dates: start: 20120927
  2. NORVASC [Concomitant]
     Dosage: 5 MG
     Route: 065
  3. TAKEPRON [Concomitant]
     Dosage: 30 MG
     Route: 065
  4. BAYASPIRIN [Concomitant]
     Dosage: 100 MG
     Route: 065
  5. THYRADIN S [Concomitant]
     Dosage: 50 MCG
     Route: 065
  6. MAINTATE [Concomitant]
     Dosage: 1.25 MG
     Route: 065

REACTIONS (1)
  - Cerebral infarction [Recovered/Resolved]
